FAERS Safety Report 7183905-0 (Version None)
Quarter: 2010Q4

REPORT INFORMATION
  Report Type: 
  Country: None (occurrence: None)
  Receive Date: 20101222
  Receipt Date: 20101221
  Transmission Date: 20110411
  Serious: Yes (Other)
  Sender: FDA-Public Use
  Company Number: US-ROXANE LABORATORIES, INC.-2010-RO-01718RO

PATIENT
  Age: 7 Year
  Sex: Female

DRUGS (4)
  1. CLARITHROMYCIN [Suspect]
     Indication: PHARYNGITIS STREPTOCOCCAL
  2. CLARITHROMYCIN [Suspect]
     Indication: PNEUMONIA
  3. PREDNISONE [Suspect]
     Route: 048
  4. LORATADINE [Suspect]

REACTIONS (4)
  - ASTHMA [None]
  - DRUG HYPERSENSITIVITY [None]
  - PHARYNGITIS STREPTOCOCCAL [None]
  - PNEUMONIA [None]
